FAERS Safety Report 17897778 (Version 1)
Quarter: 2020Q2

REPORT INFORMATION
  Report Type: Report from Study
  Country: US (occurrence: US)
  Receive Date: 20200616
  Receipt Date: 20200616
  Transmission Date: 20200714
  Serious: Yes (Death)
  Sender: FDA-Public Use
  Company Number: US-TAIHO ONCOLOGY  INC-EU-2020-02057

PATIENT
  Sex: Male

DRUGS (4)
  1. ELIQUIS [Concomitant]
     Active Substance: APIXABAN
  2. VIRTUSSIN AC SOL [Concomitant]
  3. SIMVASTATIN. [Concomitant]
     Active Substance: SIMVASTATIN
  4. LONSURF [Suspect]
     Active Substance: TIPIRACIL HYDROCHLORIDE\TRIFLURIDINE
     Indication: COLON CANCER
     Dosage: UNKNOWN CYCLE
     Route: 048
     Dates: start: 20200208

REACTIONS (1)
  - Death [Fatal]

NARRATIVE: CASE EVENT DATE: 2020
